FAERS Safety Report 23455894 (Version 1)
Quarter: 2024Q1

REPORT INFORMATION
  Report Type: Report from Study
  Country: IT (occurrence: IT)
  Receive Date: 20240130
  Receipt Date: 20240130
  Transmission Date: 20240409
  Serious: Yes (Other)
  Sender: FDA-Public Use
  Company Number: None

PATIENT
  Age: 55 Year
  Sex: Male
  Weight: 94 kg

DRUGS (3)
  1. CISPLATIN [Suspect]
     Active Substance: CISPLATIN
     Indication: Cholangiocarcinoma
     Dosage: 25 MG / MG D 1,8 Q 21
     Dates: start: 20230228, end: 20230704
  2. GEMCITABINE [Suspect]
     Active Substance: GEMCITABINE
     Indication: Product used for unknown indication
     Dosage: 1000 MG / MG D 1,8 Q 21  ( 4 CICLI)
  3. DURVALUMAB [Suspect]
     Active Substance: DURVALUMAB
     Indication: Cholangiocarcinoma
     Dates: start: 20230323, end: 20230704

REACTIONS (3)
  - Hyperamylasaemia [Unknown]
  - Pancreatitis acute [Not Recovered/Not Resolved]
  - Hyperlipasaemia [Unknown]

NARRATIVE: CASE EVENT DATE: 20230707
